FAERS Safety Report 24145101 (Version 1)
Quarter: 2024Q3

REPORT INFORMATION
  Report Type: Spontaneous
  Country: FR (occurrence: FR)
  Receive Date: 20240729
  Receipt Date: 20240729
  Transmission Date: 20241017
  Serious: Yes (Other)
  Sender: NOVARTIS
  Company Number: FR-002147023-NVSC2024FR153047

PATIENT
  Age: 74 Year
  Sex: Female

DRUGS (2)
  1. LAMPRENE [Suspect]
     Active Substance: CLOFAZIMINE
     Indication: Tuberculosis
     Dosage: 200 MG, QD (TWO WEEKS)
     Route: 065
  2. LAMPRENE [Suspect]
     Active Substance: CLOFAZIMINE
     Dosage: 100 MG, QD (MAINTENANCE DOSAGE) (SINCE THE END OF MAY)
     Route: 065

REACTIONS (2)
  - Sudden hearing loss [Unknown]
  - Off label use [Unknown]

NARRATIVE: CASE EVENT DATE: 20240701
